FAERS Safety Report 17394426 (Version 8)
Quarter: 2025Q2

REPORT INFORMATION
  Report Type: Report from Study
  Country: US (occurrence: US)
  Receive Date: 20200210
  Receipt Date: 20250602
  Transmission Date: 20250717
  Serious: Yes (Hospitalization)
  Sender: TAKEDA
  Company Number: US-SHIRE-US201937572

PATIENT
  Age: 43 Year
  Sex: Female
  Weight: 56 kg

DRUGS (33)
  1. HUMAN IMMUNOGLOBULIN G [Suspect]
     Active Substance: HUMAN IMMUNOGLOBULIN G
     Indication: Immunodeficiency common variable
     Dosage: 10 GRAM, Q4WEEKS
     Dates: start: 20030728
  2. HUMAN IMMUNOGLOBULIN G [Suspect]
     Active Substance: HUMAN IMMUNOGLOBULIN G
     Dosage: 10 GRAM, Q4WEEKS
     Dates: start: 20060829
  3. HUMAN IMMUNOGLOBULIN G [Suspect]
     Active Substance: HUMAN IMMUNOGLOBULIN G
     Dosage: 25 GRAM, Q4WEEKS
     Dates: start: 20140716
  4. HUMAN IMMUNOGLOBULIN G [Suspect]
     Active Substance: HUMAN IMMUNOGLOBULIN G
     Dosage: 25 GRAM, Q4WEEKS
     Dates: start: 20140717
  5. HUMAN IMMUNOGLOBULIN G [Suspect]
     Active Substance: HUMAN IMMUNOGLOBULIN G
     Dosage: 10 GRAM, Q4WEEKS
  6. DULOXETINE HYDROCHLORIDE [Concomitant]
     Active Substance: DULOXETINE HYDROCHLORIDE
  7. TRAMADOL [Concomitant]
     Active Substance: TRAMADOL
  8. ZOLPIDEM TARTRATE [Concomitant]
     Active Substance: ZOLPIDEM TARTRATE
  9. CALCIUM\VITAMIN D [Concomitant]
     Active Substance: CALCIUM\VITAMIN D
  10. CALCITRIOL [Concomitant]
     Active Substance: CALCITRIOL
  11. AMBIEN [Concomitant]
     Active Substance: ZOLPIDEM TARTRATE
  12. ACETAMINOPHEN [Concomitant]
     Active Substance: ACETAMINOPHEN
  13. DIPHENHYDRAMINE [Concomitant]
     Active Substance: DIPHENHYDRAMINE
  14. EPINEPHRINE [Concomitant]
     Active Substance: EPINEPHRINE
  15. SODIUM CHLORIDE [Concomitant]
     Active Substance: SODIUM CHLORIDE
  16. HYDROXYZINE HYDROCHLORIDE [Concomitant]
     Active Substance: HYDROXYZINE HYDROCHLORIDE
  17. GABAPENTIN [Concomitant]
     Active Substance: GABAPENTIN
  18. AMITRIPTYLINE [Concomitant]
     Active Substance: AMITRIPTYLINE
  19. PRAZOSIN [Concomitant]
     Active Substance: PRAZOSIN
  20. TUMS [Concomitant]
     Active Substance: CALCIUM CARBONATE
  21. VITAMIN D3 [Concomitant]
     Active Substance: CHOLECALCIFEROL
  22. VITAMIN K1 [Concomitant]
     Active Substance: PHYTONADIONE
  23. TRIAMCINOLONE ACETONIDE [Concomitant]
     Active Substance: TRIAMCINOLONE ACETONIDE
  24. BENADRYL [Concomitant]
     Active Substance: DIPHENHYDRAMINE HYDROCHLORIDE
  25. MELATONIN [Concomitant]
     Active Substance: MELATONIN
  26. PRAMIPEXOLE DIHYDROCHLORIDE [Concomitant]
     Active Substance: PRAMIPEXOLE DIHYDROCHLORIDE
  27. BENZONATATE [Concomitant]
     Active Substance: BENZONATATE
  28. CIPRO [Concomitant]
     Active Substance: CIPROFLOXACIN HYDROCHLORIDE
  29. VITAMIN E [Concomitant]
     Active Substance: .ALPHA.-TOCOPHEROL
  30. Lmx [Concomitant]
  31. DIPHENHYDRAMINE HYDROCHLORIDE [Concomitant]
     Active Substance: DIPHENHYDRAMINE HYDROCHLORIDE
  32. VITAMINS [Concomitant]
     Active Substance: VITAMINS
  33. CALCIUM\MENAQUINONE 6\VITAMIN D [Concomitant]
     Active Substance: CALCIUM\MENAQUINONE 6\VITAMIN D

REACTIONS (17)
  - Blood calcium decreased [Unknown]
  - Fall [Unknown]
  - Head injury [Recovered/Resolved]
  - Limb injury [Recovered/Resolved]
  - Streptococcus test positive [Recovered/Resolved]
  - Ear infection [Unknown]
  - Nasopharyngitis [Unknown]
  - Root canal infection [Unknown]
  - Product dose omission issue [Unknown]
  - Panic attack [Unknown]
  - Dysphonia [Not Recovered/Not Resolved]
  - Pharyngitis [Unknown]
  - Rhinorrhoea [Unknown]
  - Oropharyngeal pain [Unknown]
  - Cough [Unknown]
  - Dyspnoea [Unknown]
  - Headache [Unknown]

NARRATIVE: CASE EVENT DATE: 20200124
